FAERS Safety Report 9940162 (Version 1)
Quarter: 2014Q1

REPORT INFORMATION
  Report Type: Spontaneous
  Country: US (occurrence: US)
  Receive Date: 20140303
  Receipt Date: 20140303
  Transmission Date: 20141002
  Serious: No
  Sender: FDA-Public Use
  Company Number: US-ABBVIE-13P-163-1034637-00

PATIENT
  Sex: Female
  Weight: 79.45 kg

DRUGS (2)
  1. HUMIRA PEN [Suspect]
     Indication: COLITIS ULCERATIVE
     Dates: start: 201211
  2. LORAZEPAM [Concomitant]
     Indication: PRODUCT USED FOR UNKNOWN INDICATION

REACTIONS (5)
  - Abdominal pain [Recovering/Resolving]
  - Injection site pain [Recovered/Resolved]
  - Device failure [Unknown]
  - Injury associated with device [Unknown]
  - Incorrect dose administered [Unknown]
